FAERS Safety Report 23845709 (Version 1)
Quarter: 2024Q2

REPORT INFORMATION
  Report Type: Spontaneous
  Country: US (occurrence: US)
  Receive Date: 20240511
  Receipt Date: 20240511
  Transmission Date: 20240716
  Serious: Yes (Hospitalization)
  Sender: FDA-Public Use
  Company Number: US-DRL-USA-LIT/USA/24/0006879

PATIENT
  Age: 40 Year
  Sex: Female

DRUGS (1)
  1. METHAMPHETAMINE [Suspect]
     Active Substance: METHAMPHETAMINE
     Indication: Product use in unapproved indication

REACTIONS (5)
  - Coronary artery thrombosis [Unknown]
  - Acute myocardial infarction [Unknown]
  - Cardiomyopathy [Unknown]
  - Drug abuse [Unknown]
  - Cardiac arrest [Unknown]
